FAERS Safety Report 15832493 (Version 1)
Quarter: 2018Q4

REPORT INFORMATION
  Report Type: Spontaneous
  Country: US (occurrence: US)
  Receive Date: 20181220
  Receipt Date: 20181220
  Transmission Date: 20190205
  Serious: Yes (Hospitalization)
  Sender: FDA-Public Use
  Company Number: None

PATIENT
  Age: 61 Year
  Sex: Male

DRUGS (8)
  1. RAMIPRIL 10MG [Concomitant]
     Active Substance: RAMIPRIL
  2. LEVEMIR [Concomitant]
     Active Substance: INSULIN DETEMIR
  3. TACROLIMUS. [Suspect]
     Active Substance: TACROLIMUS
     Indication: RENAL TRANSPLANT
     Route: 048
     Dates: start: 20161108
  4. PRAVASTATIN. [Concomitant]
     Active Substance: PRAVASTATIN
  5. NOVOLOG 100/ML [Concomitant]
  6. PREDNISONE 5MG [Concomitant]
     Active Substance: PREDNISONE
  7. MYCOPHENOLIC [Suspect]
     Active Substance: MYCOPHENOLIC ACID
     Indication: RENAL TRANSPLANT
     Route: 048
     Dates: start: 20161112
  8. FUROSEMIDE 40MG [Concomitant]
     Active Substance: FUROSEMIDE

REACTIONS (1)
  - Kidney infection [None]

NARRATIVE: CASE EVENT DATE: 20181219
